FAERS Safety Report 18222716 (Version 19)
Quarter: 2024Q3

REPORT INFORMATION
  Report Type: Report from Study
  Country: BR (occurrence: BR)
  Receive Date: 20200902
  Receipt Date: 20240830
  Transmission Date: 20241017
  Serious: Yes (Other)
  Sender: GLAXOSMITHKLINE
  Company Number: BR-GLAXOSMITHKLINE-BR2017GSK089672

PATIENT

DRUGS (4)
  1. BELIMUMAB [Suspect]
     Active Substance: BELIMUMAB
     Indication: Systemic lupus erythematosus
     Dosage: 10 MG/KG, CYC
     Route: 042
     Dates: start: 20170420
  2. BELIMUMAB [Suspect]
     Active Substance: BELIMUMAB
     Dosage: UNK
     Route: 042
     Dates: start: 20170519
  3. BELIMUMAB [Suspect]
     Active Substance: BELIMUMAB
     Dosage: 613 MG
     Route: 042
     Dates: start: 20170623
  4. PREDNISONE [Suspect]
     Active Substance: PREDNISONE
     Indication: Systemic lupus erythematosus
     Dosage: UNK (STARTED 6 YEARS AGO)

REACTIONS (33)
  - Pulmonary thrombosis [Recovered/Resolved]
  - Osteonecrosis [Unknown]
  - Systemic lupus erythematosus [Unknown]
  - Cataract [Unknown]
  - Pain [Unknown]
  - Cough [Recovered/Resolved]
  - Influenza [Recovered/Resolved]
  - Urinary tract infection [Not Recovered/Not Resolved]
  - Infusion site injury [Unknown]
  - Pain in extremity [Unknown]
  - Anaemia [Unknown]
  - Weight decreased [Unknown]
  - Vision blurred [Unknown]
  - Visual impairment [Unknown]
  - Diplopia [Unknown]
  - Gait disturbance [Unknown]
  - Body height decreased [Unknown]
  - Sarcopenia [Unknown]
  - Urinary tract infection [Unknown]
  - Disease recurrence [Unknown]
  - Social problem [Unknown]
  - Influenza like illness [Not Recovered/Not Resolved]
  - Urinary tract infection [Recovered/Resolved]
  - Hip arthroplasty [Not Recovered/Not Resolved]
  - Gait disturbance [Unknown]
  - Bone erosion [Not Recovered/Not Resolved]
  - Hip surgery [Not Recovered/Not Resolved]
  - Inappropriate schedule of product administration [Recovered/Resolved]
  - Product dose omission issue [Unknown]
  - Inappropriate schedule of product administration [Unknown]
  - Circumstance or information capable of leading to medication error [Unknown]
  - Inappropriate schedule of product administration [Unknown]
  - Discomfort [Unknown]

NARRATIVE: CASE EVENT DATE: 20230401
